FAERS Safety Report 9770097 (Version 2)
Quarter: 2013Q4

REPORT INFORMATION
  Report Type: Spontaneous
  Country: US (occurrence: US)
  Receive Date: 20131218
  Receipt Date: 20131218
  Transmission Date: 20140711
  Serious: No
  Sender: FDA-Public Use
  Company Number: US-VERTEX PHARMACEUTICALS INC-AE-2011-000776

PATIENT
  Age: 55 Year
  Sex: Male

DRUGS (3)
  1. INCIVEK [Suspect]
     Indication: HEPATITIS C
     Route: 048
     Dates: start: 20110805
  2. PEGASYS [Concomitant]
     Indication: HEPATITIS C
     Dates: start: 20110805
  3. RIBAVIRIN [Concomitant]
     Indication: HEPATITIS C
     Dates: start: 20110805

REACTIONS (14)
  - Malaise [Unknown]
  - Myalgia [Unknown]
  - Somnolence [Unknown]
  - Hypersomnia [Unknown]
  - Headache [Unknown]
  - Chills [Unknown]
  - Diverticulum intestinal [Unknown]
  - Large intestine polyp [Unknown]
  - Alpha 1 foetoprotein increased [Unknown]
  - Balance disorder [Unknown]
  - Fatigue [Unknown]
  - Asthenia [Unknown]
  - Haemorrhoidal haemorrhage [Recovered/Resolved]
  - Proctalgia [Recovered/Resolved]
